FAERS Safety Report 9842080 (Version 2)
Quarter: 2014Q1

REPORT INFORMATION
  Report Type: Report from Study
  Country: US (occurrence: US)
  Receive Date: 20140124
  Receipt Date: 20140306
  Transmission Date: 20141002
  Serious: Yes (Death, Hospitalization)
  Sender: FDA-Public Use
  Company Number: US-BRISTOL-MYERS SQUIBB COMPANY-20045316

PATIENT
  Age: 77 Year
  Sex: Male
  Weight: 87.9 kg

DRUGS (10)
  1. BLINDED: NIVOLUMAB [Suspect]
     Indication: METASTATIC MALIGNANT MELANOMA
     Dosage: 14JAN14
     Route: 042
     Dates: start: 20140109
  2. IPILIMUMAB [Suspect]
     Indication: METASTATIC MALIGNANT MELANOMA
     Dosage: 14JAN14
     Route: 042
     Dates: start: 20140109
  3. BLINDED: PLACEBO [Suspect]
     Indication: METASTATIC MALIGNANT MELANOMA
     Dosage: 14JAN14
     Route: 042
     Dates: start: 20140109
  4. BUMEX [Concomitant]
  5. CARVEDILOL [Concomitant]
  6. DABIGATRAN ETEXILATE [Concomitant]
  7. LISINOPRIL [Concomitant]
  8. METFORMIN [Concomitant]
  9. SILDENAFIL [Concomitant]
  10. TERAZOSIN [Concomitant]

REACTIONS (1)
  - Septic shock [Fatal]
